FAERS Safety Report 6665682-2 (Version None)
Quarter: 2010Q2

REPORT INFORMATION
  Report Type: 
  Country: None (occurrence: None)
  Receive Date: 20100402
  Receipt Date: 20100330
  Transmission Date: 20101027
  Serious: Yes (Hospitalization)
  Sender: FDA-Public Use
  Company Number: US-ELI_LILLY_AND_COMPANY-US200712002753

PATIENT
  Sex: Female
  Weight: 87.075 kg

DRUGS (9)
  1. BYETTA [Suspect]
     Indication: TYPE 2 DIABETES MELLITUS
     Dosage: 5 UG, 2/D
     Route: 058
     Dates: start: 20071203, end: 20080101
  2. BYETTA [Suspect]
     Dosage: 10 UG, 2/D
     Route: 058
     Dates: start: 20080101, end: 20080101
  3. GLYBURIDE AND METFORMIN HCL [Concomitant]
     Dosage: 1000 MG, 2/D
  4. CORTISONE [Concomitant]
     Dosage: UNK, UNK
     Dates: start: 20080325
  5. CRESTOR [Concomitant]
     Indication: BLOOD CHOLESTEROL
     Dosage: 10 MG, DAILY (1/D)
  6. JANUVIA [Concomitant]
     Indication: TYPE 2 DIABETES MELLITUS
     Dates: end: 20071201
  7. INDAPAMIDE [Concomitant]
     Dosage: 2.5 MG, DAILY (1/D)
  8. LISINOPRIL [Concomitant]
     Indication: BLOOD PRESSURE
     Dosage: 40 MG, DAILY (1/D)
  9. METOPROLOL TARTRATE [Concomitant]
     Dosage: 100 MG, DAILY (1/D)

REACTIONS (8)
  - BLOOD GLUCOSE INCREASED [None]
  - DIZZINESS [None]
  - FEELING JITTERY [None]
  - GLYCOSYLATED HAEMOGLOBIN INCREASED [None]
  - NAUSEA [None]
  - OFF LABEL USE [None]
  - VOMITING [None]
  - WEIGHT DECREASED [None]
